FAERS Safety Report 9798985 (Version 2)
Quarter: 2014Q1

REPORT INFORMATION
  Report Type: Spontaneous
  Country: US (occurrence: US)
  Receive Date: 20140106
  Receipt Date: 20140106
  Transmission Date: 20141002
  Serious: No
  Sender: FDA-Public Use
  Company Number: US-GILEAD-2010-0032286

PATIENT
  Age: 81 Year
  Sex: Female
  Weight: 49.44 kg

DRUGS (10)
  1. LETAIRIS [Suspect]
     Indication: PULMONARY ARTERIAL HYPERTENSION
     Route: 048
     Dates: start: 20100623
  2. CARDIZEM [Concomitant]
  3. METOCLOPRAMIDE [Concomitant]
  4. OMEPRAZOLE [Concomitant]
  5. ASPIRIN [Concomitant]
  6. XYZAL [Concomitant]
  7. TRAZODONE [Concomitant]
  8. SYNTHROID [Concomitant]
  9. MULTIVITAMINS [Concomitant]
  10. FISH OIL [Concomitant]

REACTIONS (2)
  - Nasal congestion [Unknown]
  - Oedema peripheral [Unknown]
